FAERS Safety Report 23298224 (Version 1)
Quarter: 2023Q4

REPORT INFORMATION
  Report Type: Spontaneous
  Country: US (occurrence: None)
  Receive Date: 20231214
  Receipt Date: 20231214
  Transmission Date: 20240110
  Serious: Yes (Disabling)
  Sender: FDA-Public Use
  Company Number: None

PATIENT
  Age: 38 Year
  Sex: Female
  Weight: 65.25 kg

DRUGS (10)
  1. OFLOXACIN [Suspect]
     Active Substance: OFLOXACIN
     Indication: Bronchitis
     Dates: end: 20130308
  2. OFLOXACIN [Suspect]
     Active Substance: OFLOXACIN
     Indication: Urinary tract infection
  3. NORFLOXACIN [Suspect]
     Active Substance: NORFLOXACIN
  4. CIPRO [Suspect]
     Active Substance: CIPROFLOXACIN HYDROCHLORIDE
  5. FLOXIN [Suspect]
     Active Substance: OFLOXACIN
  6. FLAGYL [Suspect]
     Active Substance: METRONIDAZOLE\METRONIDAZOLE HYDROCHLORIDE
  7. PREDNISONE [Suspect]
     Active Substance: PREDNISONE
  8. XANAX [Concomitant]
     Active Substance: ALPRAZOLAM
  9. LEVOXYL [Concomitant]
     Active Substance: LEVOTHYROXINE SODIUM
  10. MELATONIN [Concomitant]
     Active Substance: MELATONIN

REACTIONS (25)
  - Malaise [None]
  - Feeling abnormal [None]
  - Pain [None]
  - Abdominal pain upper [None]
  - Post procedural infection [None]
  - Gait inability [None]
  - Arthralgia [None]
  - Panic attack [None]
  - Autoimmune thyroiditis [None]
  - Fibromyalgia [None]
  - Costochondritis [None]
  - Headache [None]
  - Haemangioma [None]
  - Gastrointestinal disorder [None]
  - Eye disorder [None]
  - Sciatica [None]
  - Muscle twitching [None]
  - Facial spasm [None]
  - Illiteracy [None]
  - Illness [None]
  - Heart rate increased [None]
  - Small fibre neuropathy [None]
  - Impaired work ability [None]
  - Lipoma [None]
  - Cyst [None]

NARRATIVE: CASE EVENT DATE: 19900101
